FAERS Safety Report 5238517-2 (Version None)
Quarter: 2007Q1

REPORT INFORMATION
  Report Type: 
  Country: None (occurrence: None)
  Receive Date: 20070215
  Receipt Date: 20070212
  Transmission Date: 20070707
  Serious: Yes (Death)
  Sender: FDA-Public Use
  Company Number: US200701005663

PATIENT
  Age: 50 Year
  Sex: Female
  Weight: 69.8 kg

DRUGS (3)
  1. WELLBUTRIN SR [Suspect]
     Indication: DRUG USE FOR UNKNOWN INDICATION
     Route: 048
  2. NORTRIPTYLINE HCL [Suspect]
  3. STRATTERA [Suspect]

REACTIONS (4)
  - ARTERIOSCLEROSIS CORONARY ARTERY [None]
  - DEATH [None]
  - DRUG TOXICITY [None]
  - GALLBLADDER DISORDER [None]
